FAERS Safety Report 9144447 (Version 2)
Quarter: 2013Q1

REPORT INFORMATION
  Report Type: Report from Study
  Country: US (occurrence: US)
  Receive Date: 20130306
  Receipt Date: 20130315
  Transmission Date: 20140127
  Serious: Yes (Hospitalization, Other)
  Sender: FDA-Public Use
  Company Number: US-PURDUE-USA-2013-0099511

PATIENT
  Age: 70 None
  Sex: Female

DRUGS (2)
  1. BUTRANS [Suspect]
     Indication: PAIN
     Dosage: 20 MCG/HR, WEEKLY
     Route: 062
     Dates: start: 2012
  2. BUTRANS [Suspect]
     Dosage: 5 MCG/HR, WEEKLY
     Route: 062
     Dates: start: 2012

REACTIONS (9)
  - Head injury [Unknown]
  - Neck pain [Unknown]
  - Chest pain [Recovered/Resolved]
  - Syncope [Unknown]
  - Asthenia [Unknown]
  - Diarrhoea [Unknown]
  - Abdominal pain [Unknown]
  - Wrong technique in drug usage process [Unknown]
  - Inadequate analgesia [Unknown]
